FAERS Safety Report 6966031-2 (Version None)
Quarter: 2010Q3

REPORT INFORMATION
  Report Type: 
  Country: None (occurrence: None)
  Receive Date: 20100903
  Receipt Date: 20100826
  Transmission Date: 20110219
  Serious: Yes (Other)
  Sender: FDA-Public Use
  Company Number: DE-ABBOTT-10P-062-0661431-00

PATIENT
  Sex: Female

DRUGS (4)
  1. HUMIRA [Suspect]
     Indication: CROHN'S DISEASE
     Route: 058
     Dates: start: 20100115
  2. SULFASALAZINE [Concomitant]
     Indication: CROHN'S DISEASE
  3. PENICILLIN [Concomitant]
     Indication: PRODUCT USED FOR UNKNOWN INDICATION
  4. ANALGESIC [Concomitant]
     Indication: ARTHROPATHY

REACTIONS (2)
  - BENIGN NEOPLASM [None]
  - IMPAIRED HEALING [None]
